FAERS Safety Report 10583282 (Version 1)
Quarter: 2014Q4

REPORT INFORMATION
  Report Type: Spontaneous
  Country: US (occurrence: None)
  Receive Date: 20141112
  Receipt Date: 20141112
  Transmission Date: 20150529
  Serious: Yes (Other)
  Sender: FDA-Public Use
  Company Number: USW201410-000250

PATIENT

DRUGS (1)
  1. MYOBLOC [Suspect]
     Active Substance: RIMABOTULINUMTOXINB

REACTIONS (5)
  - Dry mouth [None]
  - Dysphagia [None]
  - Bronchiectasis [None]
  - Gastrooesophageal reflux disease [None]
  - Constipation [None]
